FAERS Safety Report 5074133-3 (Version None)
Quarter: 2006Q3

REPORT INFORMATION
  Report Type: 
  Country: None (occurrence: None)
  Receive Date: 20060803
  Receipt Date: 20060724
  Transmission Date: 20061208
  Serious: Yes (Hospitalization, Other)
  Sender: FDA-Public Use
  Company Number: 2006081194

PATIENT
  Age: 49 Year
  Sex: Female

DRUGS (5)
  1. GEODON [Suspect]
     Indication: PSYCHOTIC DISORDER
     Dosage: 80 MG (40 MG, 2 IN 1 D), ORAL
     Route: 048
     Dates: end: 20060627
  2. ALPRAZOLAM [Suspect]
     Indication: INSOMNIA
  3. CLONAZEPAM [Suspect]
     Indication: INSOMNIA
  4. ALL OTHER THERAPEUTIC PRODUCTS (ALL OTHER THERAPEUTIC PRODUCTS) [Suspect]
     Indication: INSOMNIA
  5. PAXIL [Concomitant]

REACTIONS (6)
  - DECEREBRATION [None]
  - DELUSION [None]
  - HALLUCINATION, AUDITORY [None]
  - INCORRECT DOSE ADMINISTERED [None]
  - RESPIRATORY ARREST [None]
  - SUICIDE ATTEMPT [None]
